FAERS Safety Report 7193964-7 (Version None)
Quarter: 2010Q4

REPORT INFORMATION
  Report Type: 
  Country: None (occurrence: None)
  Receive Date: 20101223
  Receipt Date: 20101216
  Transmission Date: 20110411
  Serious: Yes (Other)
  Sender: FDA-Public Use
  Company Number: DE-TEVA-259952GER

PATIENT
  Age: 44 Year
  Sex: Male

DRUGS (2)
  1. METRONIDAZOLE [Suspect]
     Indication: PERIODONTITIS
     Route: 048
  2. ORAQIX PARODONTAL-GEL [Concomitant]
     Indication: PERIODONTAL DISEASE
     Route: 004

REACTIONS (2)
  - CARDIOVASCULAR INSUFFICIENCY [None]
  - PALPITATIONS [None]
